FAERS Safety Report 4334477-7 (Version None)
Quarter: 2004Q2

REPORT INFORMATION
  Report Type: 
  Country: None (occurrence: None)
  Receive Date: 20040407
  Receipt Date: 20040326
  Transmission Date: 20050107
  Serious: Yes (Hospitalization)
  Sender: FDA-Public Use
  Company Number: PL-BRISTOL-MYERS SQUIBB COMPANY-12543294

PATIENT
  Age: 59 Year
  Sex: Male

DRUGS (7)
  1. CISPLATIN [Suspect]
     Indication: NON-SMALL CELL LUNG CANCER
     Route: 042
     Dates: start: 20040203, end: 20040203
  2. PACLITAXEL [Suspect]
     Indication: NON-SMALL CELL LUNG CANCER
     Route: 042
     Dates: start: 20040203, end: 20040203
  3. ASPIRIN [Concomitant]
     Indication: MYOCARDIAL ISCHAEMIA
     Dates: start: 19910101
  4. ISOSORBIDE DINITRATE [Concomitant]
     Indication: MYOCARDIAL ISCHAEMIA
     Dates: start: 19910101
  5. BISOPROLOL [Concomitant]
     Indication: MYOCARDIAL ISCHAEMIA
  6. AMIODARONE HCL [Concomitant]
     Indication: VENTRICULAR EXTRASYSTOLES
     Dates: start: 20030701
  7. THEOPHYLLINE [Concomitant]
     Indication: DYSPNOEA
     Dates: start: 20031022

REACTIONS (1)
  - CARDIAC FAILURE [None]
